FAERS Safety Report 11663175 (Version 1)
Quarter: 2015Q4

REPORT INFORMATION
  Report Type: Spontaneous
  Country: US (occurrence: US)
  Receive Date: 20151027
  Receipt Date: 20151027
  Transmission Date: 20160304
  Serious: No
  Sender: FDA-Public Use
  Company Number: US-MEDA-2014120057

PATIENT
  Age: 64 Year
  Sex: Female
  Weight: 57 kg

DRUGS (8)
  1. DYMISTA [Suspect]
     Active Substance: AZELASTINE HYDROCHLORIDE\FLUTICASONE PROPIONATE
     Indication: ALLERGIC SINUSITIS
     Dates: start: 201404, end: 201411
  2. ESTRATEST [Concomitant]
     Active Substance: ESTROGENS, ESTERIFIED\METHYLTESTOSTERONE
     Indication: HORMONE THERAPY
     Dates: start: 1997, end: 2014
  3. PROMETRIUM [Concomitant]
     Active Substance: PROGESTERONE
     Indication: HORMONE THERAPY
     Dates: start: 1997, end: 2014
  4. ZYRTEC [Concomitant]
     Active Substance: CETIRIZINE HYDROCHLORIDE
     Indication: ALLERGY TO ANIMAL
     Dates: start: 1980, end: 2014
  5. ZYRTEC [Concomitant]
     Active Substance: CETIRIZINE HYDROCHLORIDE
     Indication: ALLERGY TO PLANTS
     Dates: start: 1980, end: 2014
  6. DYMISTA [Suspect]
     Active Substance: AZELASTINE HYDROCHLORIDE\FLUTICASONE PROPIONATE
     Indication: ALLERGIC SINUSITIS
     Dates: start: 201411
  7. ZYRTEC [Concomitant]
     Active Substance: CETIRIZINE HYDROCHLORIDE
     Indication: HOUSE DUST ALLERGY
     Dates: start: 1980, end: 2014
  8. PROTONIX [Concomitant]
     Active Substance: PANTOPRAZOLE SODIUM
     Indication: GASTROOESOPHAGEAL REFLUX DISEASE
     Dates: start: 1990, end: 2014

REACTIONS (8)
  - Fatigue [Not Recovered/Not Resolved]
  - Headache [Recovered/Resolved]
  - Hepatic enzyme increased [Not Recovered/Not Resolved]
  - Dysgeusia [Recovered/Resolved]
  - Abdominal pain upper [Not Recovered/Not Resolved]
  - Abdominal discomfort [Not Recovered/Not Resolved]
  - Epistaxis [Recovered/Resolved]
  - Chest discomfort [Not Recovered/Not Resolved]

NARRATIVE: CASE EVENT DATE: 2014
